FAERS Safety Report 6870523-4 (Version None)
Quarter: 2010Q3

REPORT INFORMATION
  Report Type: 
  Country: None (occurrence: None)
  Receive Date: 20100723
  Receipt Date: 20100714
  Transmission Date: 20110219
  Serious: No
  Sender: FDA-Public Use
  Company Number: 2005BI021322

PATIENT
  Age: 40 Year
  Sex: Female
  Weight: 74 kg

DRUGS (3)
  1. TYSABRI [Suspect]
     Indication: MULTIPLE SCLEROSIS
     Route: 042
     Dates: start: 20050214, end: 20050214
  2. TYSABRI [Suspect]
     Route: 042
     Dates: start: 20091204
  3. REBIF [Concomitant]
     Indication: MULTIPLE SCLEROSIS
     Dates: start: 20040901

REACTIONS (6)
  - CARDIAC MURMUR [None]
  - DYSPNOEA [None]
  - FATIGUE [None]
  - INFUSION SITE DERMATITIS [None]
  - INFUSION SITE INFECTION [None]
  - MULTIPLE SCLEROSIS RELAPSE [None]
